FAERS Safety Report 6477988-0 (Version None)
Quarter: 2009Q4

REPORT INFORMATION
  Report Type: 
  Country: None (occurrence: None)
  Receive Date: 20091207
  Receipt Date: 20091130
  Transmission Date: 20100525
  Serious: Yes (Life-Threatening, Hospitalization)
  Sender: FDA-Public Use
  Company Number: B0606998A

PATIENT
  Sex: Female

DRUGS (2)
  1. ARIXTRA [Suspect]
     Route: 058
     Dates: start: 20090928, end: 20091009
  2. LOVENOX [Suspect]
     Route: 058
     Dates: start: 20090921, end: 20090928

REACTIONS (4)
  - CONDITION AGGRAVATED [None]
  - INTRAVENTRICULAR HAEMORRHAGE [None]
  - THROMBOCYTOPENIA [None]
  - VENOUS THROMBOSIS LIMB [None]
